FAERS Safety Report 10041610 (Version 1)
Quarter: 2014Q1

REPORT INFORMATION
  Report Type: Spontaneous
  Country: US (occurrence: US)
  Receive Date: 20140327
  Receipt Date: 20140327
  Transmission Date: 20141002
  Serious: Yes (Death, Hospitalization, Other)
  Sender: FDA-Public Use
  Company Number: PHHY2014US035299

PATIENT
  Age: 39 Year
  Sex: Male

DRUGS (16)
  1. VALPROIC ACID [Suspect]
  2. ETHAMBUTOL [Suspect]
     Indication: TOXOPLASMOSIS PROPHYLAXIS
  3. ETHAMBUTOL [Suspect]
     Indication: MYCOBACTERIUM AVIUM COMPLEX INFECTION
  4. AZITHROMYCIN [Suspect]
     Indication: TOXOPLASMOSIS PROPHYLAXIS
  5. AZITHROMYCIN [Suspect]
     Indication: MYCOBACTERIUM AVIUM COMPLEX INFECTION
  6. ATOVAQUONE [Suspect]
     Indication: TOXOPLASMOSIS PROPHYLAXIS
  7. ATOVAQUONE [Suspect]
     Indication: MYCOBACTERIUM AVIUM COMPLEX INFECTION
  8. DAPSONE [Suspect]
  9. TENOFOVIR [Suspect]
     Indication: ANTIRETROVIRAL THERAPY
     Dates: start: 1999
  10. EMTRICITABINE [Suspect]
     Indication: ANTIRETROVIRAL THERAPY
     Dates: start: 1999
  11. LOPINAVIR W/RITONAVIR [Suspect]
     Indication: ANTIRETROVIRAL THERAPY
     Dates: start: 1999
  12. ANTIBIOTICS [Suspect]
     Indication: SINUSITIS
  13. ETRAVIRINE [Suspect]
     Indication: ANTIRETROVIRAL THERAPY
  14. RALTEGRAVIR [Suspect]
     Indication: ANTIRETROVIRAL THERAPY
  15. DARUNAVIR [Suspect]
     Indication: ANTIRETROVIRAL THERAPY
  16. CEFEPIME [Concomitant]
     Indication: PNEUMONIA

REACTIONS (8)
  - Multi-organ failure [Fatal]
  - Vanishing bile duct syndrome [Unknown]
  - Hyperbilirubinaemia [Unknown]
  - Hepatomegaly [Unknown]
  - Cholestasis [Unknown]
  - Jaundice [Unknown]
  - Renal failure [Unknown]
  - Epstein-Barr virus infection [Unknown]
